FAERS Safety Report 10588637 (Version 2)
Quarter: 2014Q4

REPORT INFORMATION
  Report Type: Spontaneous
  Country: FR (occurrence: FR)
  Receive Date: 20141117
  Receipt Date: 20141117
  Transmission Date: 20150529
  Serious: Yes (Hospitalization, Other)
  Sender: FDA-Public Use
  Company Number: FR-ROCHE-GNE315210

PATIENT
  Age: 67 Year
  Sex: Male

DRUGS (5)
  1. LUCENTIS [Suspect]
     Active Substance: RANIBIZUMAB
     Indication: AGE-RELATED MACULAR DEGENERATION
     Dosage: MOST RECENT DOSE RECEIVED AT 07/OCT/2014.
     Route: 050
     Dates: start: 20100413
  2. PERMIXON [Concomitant]
     Active Substance: SAW PALMETTO
     Route: 065
     Dates: start: 20100101
  3. LUCENTIS [Suspect]
     Active Substance: RANIBIZUMAB
     Route: 050
     Dates: start: 20141007
  4. LUCENTIS [Suspect]
     Active Substance: RANIBIZUMAB
     Route: 050
     Dates: start: 20101109
  5. FLU VACCINATION [Concomitant]
     Active Substance: INFLUENZA VIRUS VACCINE

REACTIONS (10)
  - Malaise [Not Recovered/Not Resolved]
  - Influenza like illness [Recovered/Resolved]
  - Gastrointestinal haemorrhage [Not Recovered/Not Resolved]
  - Pyrexia [Recovered/Resolved]
  - Anaemia [Not Recovered/Not Resolved]
  - Dyspnoea [Not Recovered/Not Resolved]
  - Arthralgia [Recovered/Resolved]
  - Gastrointestinal dysplasia [Not Recovered/Not Resolved]
  - Malaise [Recovered/Resolved]
  - Myalgia [Recovered/Resolved]

NARRATIVE: CASE EVENT DATE: 201009
